FAERS Safety Report 23570878 (Version 1)
Quarter: 2024Q1

REPORT INFORMATION
  Report Type: Report from Study
  Country: CA (occurrence: CA)
  Receive Date: 20240227
  Receipt Date: 20240227
  Transmission Date: 20240410
  Serious: Yes (Hospitalization)
  Sender: FDA-Public Use
  Company Number: CA-OTSUKA-2024_004895

PATIENT
  Sex: Male

DRUGS (1)
  1. CEDAZURIDINE\DECITABINE [Suspect]
     Active Substance: CEDAZURIDINE\DECITABINE
     Indication: Myelodysplastic syndrome
     Dosage: 1 DF (35 MG OF DECITABINE AND 100 MG OF CEDAZURIDINE), QD (ON DAYS 1 THROUGH 5 OF EVERY 28 DAYS)
     Route: 048
     Dates: start: 20240123

REACTIONS (4)
  - Full blood count abnormal [Unknown]
  - Infection [Unknown]
  - Peripheral swelling [Unknown]
  - Fall [Unknown]
